FAERS Safety Report 16107710 (Version 1)
Quarter: 2019Q1

REPORT INFORMATION
  Report Type: Spontaneous
  Country: FR (occurrence: FR)
  Receive Date: 20190322
  Receipt Date: 20190322
  Transmission Date: 20190418
  Serious: Yes (Death)
  Sender: FDA-Public Use
  Company Number: FR-SA-2019SA078076

PATIENT
  Age: 58 Year
  Sex: Male

DRUGS (1)
  1. LOVENOX [Suspect]
     Active Substance: ENOXAPARIN SODIUM
     Indication: ATRIAL FIBRILLATION
     Dosage: UNK UNK, UNK
     Route: 058

REACTIONS (2)
  - Death [Fatal]
  - Ischaemic stroke [Fatal]

NARRATIVE: CASE EVENT DATE: 20180614
